FAERS Safety Report 8349836 (Version 4)
Quarter: 2012Q4

REPORT INFORMATION
  Report Type: 
  Country: US (occurrence: US)
  Receive Date: 20120123
  Receipt Date: 20121023
  Transmission Date: 20130627
  Serious: Yes (Other)
  Sender: FDA-Public Use
  Company Number: CHPA2012US001379

PATIENT
  Age: 50 Year
  Sex: Female

DRUGS (1)
  1. NODOZ [Suspect]
     Indication: DEPRESSED LEVEL OF CONSCIOUSNESS
     Dosage: 0.5-2 tablets at a time
     Route: 048
     Dates: start: 1977

REACTIONS (9)
  - Blood pressure increased [Recovered/Resolved]
  - Tachycardia [Not Recovered/Not Resolved]
  - Stress [Unknown]
  - Palpitations [Unknown]
  - Therapeutic response unexpected [Unknown]
  - Off label use [Unknown]
  - Heart rate increased [Not Recovered/Not Resolved]
  - Incorrect dose administered [Unknown]
  - Wrong technique in drug usage process [Unknown]
